FAERS Safety Report 20879863 (Version 3)
Quarter: 2024Q2

REPORT INFORMATION
  Report Type: Spontaneous
  Country: US (occurrence: US)
  Receive Date: 20220526
  Receipt Date: 20240601
  Transmission Date: 20240715
  Serious: No
  Sender: FDA-Public Use
  Company Number: US-RADIUS HEALTH INC.-2021US002155

PATIENT
  Sex: Female

DRUGS (6)
  1. TYMLOS [Suspect]
     Active Substance: ABALOPARATIDE
     Indication: Senile osteoporosis
     Dosage: 80 MICROGRAM, QD
     Route: 058
     Dates: start: 20210430
  2. TYMLOS [Suspect]
     Active Substance: ABALOPARATIDE
     Dosage: 80 MICROGRAM, QD
     Route: 058
     Dates: start: 20210430
  3. TYMLOS [Suspect]
     Active Substance: ABALOPARATIDE
     Dosage: 80 MICROGRAM, QD
     Route: 058
     Dates: start: 20210430
  4. ADDERALL [Concomitant]
     Active Substance: AMPHETAMINE ASPARTATE\AMPHETAMINE SULFATE\DEXTROAMPHETAMINE SACCHARATE\DEXTROAMPHETAMINE SULFATE
     Indication: Product used for unknown indication
     Dosage: UNK
     Route: 048
  5. PROCAINE HYDROCHLORIDE [Concomitant]
     Active Substance: PROCAINE HYDROCHLORIDE
     Indication: Product used for unknown indication
  6. CALCIUM\VITAMIN D [Concomitant]
     Active Substance: CALCIUM\VITAMIN D
     Indication: Supplementation therapy
     Dosage: UNK

REACTIONS (17)
  - Weight decreased [Not Recovered/Not Resolved]
  - Alopecia [Unknown]
  - Product dose omission in error [Unknown]
  - Infection [Unknown]
  - Loss of personal independence in daily activities [Unknown]
  - Intentional dose omission [Unknown]
  - Dizziness [Unknown]
  - Fatigue [Not Recovered/Not Resolved]
  - Headache [Not Recovered/Not Resolved]
  - Pain [Not Recovered/Not Resolved]
  - Dyspnoea [Not Recovered/Not Resolved]
  - Nausea [Unknown]
  - Injection site reaction [Unknown]
  - Vomiting [Unknown]
  - Bone pain [Unknown]
  - Product use complaint [Unknown]
  - Injection site pain [None]
